FAERS Safety Report 6015134-8 (Version None)
Quarter: 2008Q4

REPORT INFORMATION
  Report Type: 
  Country: None (occurrence: None)
  Receive Date: 20081218
  Receipt Date: 20081202
  Transmission Date: 20090506
  Serious: Yes (Hospitalization)
  Sender: FDA-Public Use
  Company Number: KV200800859

PATIENT
  Age: 77 Year
  Sex: Female

DRUGS (21)
  1. ISOSORBIDE MONONITRATE [Suspect]
     Indication: CARDIAC DISORDER
     Dosage: 30 MG, QD, ORAL
     Route: 048
     Dates: start: 20060101, end: 20081101
  2. LISINOPRIL [Concomitant]
  3. ASPIRIN [Concomitant]
  4. NITROGLYCERIN [Concomitant]
  5. PLAVIX [Concomitant]
  6. ENABLEX  /01760401/ (DARIFENACIN) [Concomitant]
  7. ATENOLOL [Concomitant]
  8. PREVACID [Concomitant]
  9. POTASSIUM (POTASSIUM) [Concomitant]
  10. VYTORIN [Concomitant]
  11. STOOL SOFTENER (DOCUSATE SODIUM) [Concomitant]
  12. FOSAMAX [Concomitant]
  13. LEVOTHYROXINE SODIUM [Concomitant]
  14. LAMICTAL [Concomitant]
  15. MIRALAX [Concomitant]
  16. TYLENOL W/ CODEINE [Concomitant]
  17. FISH OIL (FISH OIL) [Concomitant]
  18. CRANBERRY /01512301/ (VACCINIUM MACROCARPON) [Concomitant]
  19. ULTRAM [Concomitant]
  20. NIACIN [Concomitant]
  21. VACCINIUM MACROCARPON [Concomitant]

REACTIONS (4)
  - DIZZINESS [None]
  - FALL [None]
  - PRODUCT QUALITY ISSUE [None]
  - UPPER LIMB FRACTURE [None]
